FAERS Safety Report 7308178-7 (Version None)
Quarter: 2011Q1

REPORT INFORMATION
  Report Type: 
  Country: None (occurrence: None)
  Receive Date: 20110210
  Receipt Date: 20110127
  Transmission Date: 20110831
  Serious: Yes (Hospitalization)
  Sender: FDA-Public Use
  Company Number: 2011SP000312

PATIENT
  Sex: Female

DRUGS (1)
  1. XOPENEX [Suspect]
     Indication: CHRONIC OBSTRUCTIVE PULMONARY DISEASE
     Dosage: QID; INHALATION
     Route: 055

REACTIONS (3)
  - APPARENT DEATH [None]
  - BRONCHIAL SECRETION RETENTION [None]
  - INFECTION [None]
